FAERS Safety Report 25048344 (Version 1)
Quarter: 2025Q1

REPORT INFORMATION
  Report Type: Spontaneous
  Country: JP (occurrence: JP)
  Receive Date: 20250307
  Receipt Date: 20250307
  Transmission Date: 20250409
  Serious: Yes (Other)
  Sender: TAKEDA
  Company Number: JP-TAKEDA-2024TJP017574

PATIENT
  Age: 4 Decade
  Sex: Male

DRUGS (3)
  1. RURIOCTOCOG ALFA PEGOL [Suspect]
     Active Substance: RURIOCTOCOG ALFA PEGOL
     Indication: Factor VIII deficiency
  2. RURIOCTOCOG ALFA PEGOL [Suspect]
     Active Substance: RURIOCTOCOG ALFA PEGOL
  3. RURIOCTOCOG ALFA PEGOL [Suspect]
     Active Substance: RURIOCTOCOG ALFA PEGOL

REACTIONS (4)
  - Anaphylactic reaction [Recovered/Resolved]
  - Factor VIII activity decreased [Recovered/Resolved]
  - Anti-polyethylene glycol antibody present [Recovered/Resolved]
  - Polymers allergy [Recovering/Resolving]

NARRATIVE: CASE EVENT DATE: 20230519
